FAERS Safety Report 12104295 (Version 2)
Quarter: 2016Q2

REPORT INFORMATION
  Report Type: Spontaneous
  Country: TW (occurrence: TW)
  Receive Date: 20160223
  Receipt Date: 20160401
  Transmission Date: 20160815
  Serious: Yes (Hospitalization)
  Sender: FDA-Public Use
  Company Number: PHHY2016TW022675

PATIENT
  Age: 55 Year
  Sex: Male
  Weight: 71 kg

DRUGS (5)
  1. TERBINAFINE. [Suspect]
     Active Substance: TERBINAFINE
     Indication: FUNGAL INFECTION
     Dosage: 1 MG, QD
     Route: 065
  2. CICLOPIROX OLAMINE. [Concomitant]
     Active Substance: CICLOPIROX OLAMINE
     Indication: FUNGAL INFECTION
     Dosage: 10G/TUBE
     Route: 061
  3. LEVOCETIRIZINE [Concomitant]
     Active Substance: LEVOCETIRIZINE
     Indication: FUNGAL INFECTION
     Dosage: 1 MG, QD
     Route: 065
  4. NEO CORTISONE [Concomitant]
     Indication: PRODUCT USED FOR UNKNOWN INDICATION
     Dosage: 15 G TUBE
     Route: 065
  5. PASCA [Concomitant]
     Indication: FUNGAL INFECTION
     Dosage: 10 G/TUBE, BID
     Route: 061

REACTIONS (10)
  - Agranulocytosis [Recovering/Resolving]
  - Dyspnoea exertional [Recovering/Resolving]
  - Oropharyngeal pain [Unknown]
  - Peritonsillar abscess [Unknown]
  - Cough [Recovering/Resolving]
  - Mucosal hyperaemia [Unknown]
  - Febrile neutropenia [Recovering/Resolving]
  - Pneumonia [Recovering/Resolving]
  - Pyrexia [Recovered/Resolved]
  - Dysphagia [Unknown]

NARRATIVE: CASE EVENT DATE: 20070709
